FAERS Safety Report 15235252 (Version 1)
Quarter: 2018Q3

REPORT INFORMATION
  Report Type: Spontaneous
  Country: IT (occurrence: IT)
  Receive Date: 20180803
  Receipt Date: 20180803
  Transmission Date: 20181010
  Serious: Yes (Life-Threatening)
  Sender: FDA-Public Use
  Company Number: IT-TEVA-2018-IT-934684

PATIENT
  Age: 46 Year
  Sex: Male

DRUGS (1)
  1. RIFAMPICIN [Suspect]
     Active Substance: RIFAMPIN
     Indication: ACNE
     Route: 048
     Dates: start: 20180605, end: 20180605

REACTIONS (1)
  - Coagulopathy [Recovering/Resolving]

NARRATIVE: CASE EVENT DATE: 20180605
